FAERS Safety Report 6549110-3 (Version None)
Quarter: 2010Q1

REPORT INFORMATION
  Report Type: 
  Country: None (occurrence: None)
  Receive Date: 20100125
  Receipt Date: 20100120
  Transmission Date: 20100710
  Serious: Yes (Hospitalization)
  Sender: FDA-Public Use
  Company Number: BR-ROCHE-680696

PATIENT
  Sex: Female
  Weight: 48 kg

DRUGS (2)
  1. ROACUTAN [Suspect]
     Indication: ACNE
     Dosage: START DATE AND STOP DATE REPORTED AS 2005 OR 2006
     Route: 048
     Dates: start: 20050101, end: 20050101
  2. DIANE [Concomitant]

REACTIONS (2)
  - ANAEMIA [None]
  - NEPHROLITHIASIS [None]
